FAERS Safety Report 13381971 (Version 1)
Quarter: 2017Q1

REPORT INFORMATION
  Report Type: Spontaneous
  Country: US (occurrence: US)
  Receive Date: 20170329
  Receipt Date: 20170329
  Transmission Date: 20170429
  Serious: No
  Sender: FDA-Public Use
  Company Number: US-MYLANLABS-2016M1029724

PATIENT
  Age: 85 Year
  Sex: Female
  Weight: 61.68 kg

DRUGS (2)
  1. CHLORTHALIDONE TABLETS USP [Suspect]
     Active Substance: CHLORTHALIDONE
     Indication: OEDEMA
     Dosage: 25 MG, AM
     Route: 048
     Dates: start: 20160711, end: 20160713
  2. CHLORTHALIDONE TABLETS USP [Suspect]
     Active Substance: CHLORTHALIDONE
     Indication: HYPERTENSION

REACTIONS (4)
  - Dizziness [Recovered/Resolved]
  - Dysgeusia [Recovered/Resolved]
  - Pollakiuria [Recovered/Resolved]
  - Blood sodium decreased [Not Recovered/Not Resolved]

NARRATIVE: CASE EVENT DATE: 20160711
